FAERS Safety Report 7581618-4 (Version None)
Quarter: 2011Q2

REPORT INFORMATION
  Report Type: 
  Country: None (occurrence: None)
  Receive Date: 20110629
  Receipt Date: 20110628
  Transmission Date: 20111010
  Serious: Yes (Life-Threatening, Hospitalization, Other)
  Sender: FDA-Public Use
  Company Number: PHHY2011FR34380

PATIENT
  Sex: Male
  Weight: 89 kg

DRUGS (11)
  1. AMLODIPINE [Concomitant]
     Dosage: 10 MG DAILY
     Dates: start: 20100101
  2. CLINDAMYCIN HCL [Concomitant]
     Indication: OSTEOMYELITIS
     Dosage: 2.4 G DAILY
     Dates: start: 20110408
  3. ATORVASTATIN CALCIUM [Suspect]
     Dosage: 10 MG DAILY
     Dates: start: 20100101, end: 20110413
  4. FUCIDINE CAP [Concomitant]
     Indication: OSTEOMYELITIS
     Dosage: 1.5 G DAILY
     Dates: start: 20110408
  5. CORDARONE [Suspect]
     Dosage: 1 DF, UNK
     Dates: start: 20100101, end: 20110413
  6. ATACAND [Suspect]
     Dosage: 16 MG DAILY
     Dates: start: 20100101, end: 20110413
  7. LASIX [Suspect]
     Dosage: 20 MG, QD
     Dates: start: 20100101, end: 20110413
  8. TASIGNA [Suspect]
     Indication: CHRONIC MYELOID LEUKAEMIA
     Dosage: 400 MG, BID
     Route: 048
     Dates: start: 20100205, end: 20110413
  9. ASPIRIN [Concomitant]
     Dosage: 75 MG DAILY
     Dates: end: 20110408
  10. RABEPRAZOLE SODIUM [Concomitant]
     Dosage: 10 MG DAILY
     Dates: start: 20100101, end: 20110413
  11. PLAVIX [Concomitant]
     Dosage: 75 MG, UNK
     Dates: start: 20110408, end: 20110413

REACTIONS (11)
  - BLOOD CREATININE INCREASED [None]
  - BLOOD UREA INCREASED [None]
  - PULMONARY OEDEMA [None]
  - HAEMOGLOBIN DECREASED [None]
  - STAPHYLOCOCCAL OSTEOMYELITIS [None]
  - BLOOD CREATINE PHOSPHOKINASE INCREASED [None]
  - SKIN ULCER [None]
  - RENAL FAILURE ACUTE [None]
  - URINE OUTPUT DECREASED [None]
  - HYPERKALAEMIA [None]
  - SINUS BRADYCARDIA [None]
